FAERS Safety Report 8481534 (Version 9)
Quarter: 2012Q4

REPORT INFORMATION
  Report Type: 
  Country: JP (occurrence: JP)
  Receive Date: 20120329
  Receipt Date: 20121107
  Transmission Date: 20130627
  Serious: Yes (Death, Hospitalization, Other)
  Sender: FDA-Public Use
  Company Number: JP-JNJFOC-20120311725

PATIENT
  Age: 71 Year
  Sex: Male
  Weight: 41 kg

DRUGS (14)
  1. TRAMCET [Suspect]
     Indication: PAIN
     Dosage: 1 per 1 day
     Route: 048
     Dates: start: 20120313, end: 20120314
  2. LYRICA [Suspect]
     Indication: PAIN
     Dosage: 1 per 1 day
     Route: 048
     Dates: start: 20120221, end: 20120312
  3. LYRICA [Suspect]
     Indication: PAIN
     Dosage: 1 per 1 day
     Route: 048
     Dates: start: 20120313, end: 20120314
  4. LANIRAPID [Concomitant]
     Indication: PRODUCT USED FOR UNKNOWN INDICATION
     Dosage: 1 per 1 day
     Route: 048
     Dates: end: 20120314
  5. RIBALL [Concomitant]
     Indication: HYPERTENSION
     Dosage: 1 per 1 day
     Route: 048
     Dates: end: 20120314
  6. LASIX [Concomitant]
     Indication: HYPERTENSION
     Dosage: 1 per 1 day
     Route: 048
     Dates: end: 20120314
  7. EPLERENONE [Concomitant]
     Indication: CONGESTIVE CARDIOMYOPATHY
     Dosage: 1 per 1 day
     Route: 048
     Dates: end: 20120314
  8. FAMOTIDINE [Concomitant]
     Indication: GASTRITIS PROPHYLAXIS
     Dosage: 1 per 1 day
     Route: 048
     Dates: end: 20120314
  9. AMOBAN [Concomitant]
     Indication: INSOMNIA
     Dosage: 1 per 1 day
     Route: 048
     Dates: end: 20120314
  10. SELBEX [Concomitant]
     Indication: GASTRITIS PROPHYLAXIS
     Dosage: 1 per 1 day
     Route: 048
     Dates: start: 20120210, end: 20120314
  11. SENNOSIDE [Concomitant]
     Indication: CONSTIPATION
     Dosage: 1 per 1 day
     Route: 048
     Dates: start: 20110517, end: 20120314
  12. SPIRIVA [Concomitant]
     Indication: EMPHYSEMA
     Dosage: 1 per 1 day
     Route: 055
     Dates: end: 20120314
  13. MAGMITT [Concomitant]
     Indication: CONSTIPATION
     Dosage: 1 per 1 day
     Route: 048
     Dates: end: 20120314
  14. PRIMPERAN [Concomitant]
     Indication: PROPHYLAXIS
     Dosage: 1 per 1 day
     Route: 048
     Dates: start: 20120313, end: 20120314

REACTIONS (9)
  - Cardiac failure [Fatal]
  - Renal failure [Unknown]
  - Somnolence [Recovered/Resolved]
  - Respiratory depression [Recovered/Resolved]
  - Hallucination, visual [Recovered/Resolved]
  - Personality disorder [Recovered/Resolved]
  - Hyperkalaemia [Unknown]
  - Depressed level of consciousness [Unknown]
  - Hypercapnia [Recovered/Resolved]
